FAERS Safety Report 5639745-4 (Version None)
Quarter: 2008Q1

REPORT INFORMATION
  Report Type: 
  Country: None (occurrence: None)
  Receive Date: 20080222
  Receipt Date: 20080213
  Transmission Date: 20080703
  Serious: Yes (Hospitalization)
  Sender: FDA-Public Use
  Company Number: 2008-01364

PATIENT
  Age: 40 Year
  Sex: Male

DRUGS (1)
  1. VERAPAMIL [Suspect]
     Indication: OVERDOSE
     Dosage: 50 PILLS, SINGLE, ORAL
     Route: 048

REACTIONS (7)
  - ACUTE RESPIRATORY DISTRESS SYNDROME [None]
  - BLOOD CREATININE INCREASED [None]
  - LUNG INFILTRATION [None]
  - MULTI-ORGAN FAILURE [None]
  - OVERDOSE [None]
  - SHOCK [None]
  - URINE OUTPUT DECREASED [None]
